APPROVED DRUG PRODUCT: GENTAMICIN SULFATE
Active Ingredient: GENTAMICIN SULFATE
Strength: EQ 0.1% BASE
Dosage Form/Route: CREAM;TOPICAL
Application: A062427 | Product #001
Applicant: SUN PHARMA CANADA INC
Approved: May 26, 1983 | RLD: No | RS: No | Type: DISCN